FAERS Safety Report 6660789-8 (Version None)
Quarter: 2010Q1

REPORT INFORMATION
  Report Type: 
  Country: None (occurrence: None)
  Receive Date: 20100331
  Receipt Date: 20100322
  Transmission Date: 20100710
  Serious: Yes (Other)
  Sender: FDA-Public Use
  Company Number: BR-JNJFOC-20100307883

PATIENT
  Sex: Female

DRUGS (4)
  1. TYLEX [Suspect]
     Indication: ANALGESIC THERAPY
     Route: 065
  2. RIVOTRIL [Interacting]
     Indication: DEPRESSION
     Route: 065
  3. LOSARTAN POTASSIUM [Concomitant]
     Indication: BLOOD PRESSURE INCREASED
     Route: 065
  4. PURAN T4 [Concomitant]
     Indication: HYPOTHYROIDISM
     Route: 065

REACTIONS (3)
  - DRUG INTERACTION [None]
  - TACHYCARDIA [None]
  - TREMOR [None]
